FAERS Safety Report 5134940-5 (Version None)
Quarter: 2006Q4

REPORT INFORMATION
  Report Type: 
  Country: None (occurrence: None)
  Receive Date: 20061025
  Receipt Date: 20061018
  Transmission Date: 20070319
  Serious: Yes (Life-Threatening)
  Sender: FDA-Public Use
  Company Number: BR-JNJFOC-20061005071

PATIENT
  Age: 40 Year
  Sex: Male

DRUGS (5)
  1. HALDOL [Suspect]
     Indication: DRUG USE FOR UNKNOWN INDICATION
  2. FLUOXETINE [Concomitant]
  3. CHLORPROMAZINE [Concomitant]
  4. LITHIUM CARBONATE [Concomitant]
  5. DIAZEPAM [Concomitant]

REACTIONS (3)
  - CATATONIA [None]
  - PHYSICAL ASSAULT [None]
  - SUICIDE ATTEMPT [None]
